FAERS Safety Report 6389389-4 (Version None)
Quarter: 2009Q4

REPORT INFORMATION
  Report Type: 
  Country: None (occurrence: None)
  Receive Date: 20091006
  Receipt Date: 20090924
  Transmission Date: 20100525
  Serious: Yes (Hospitalization)
  Sender: FDA-Public Use
  Company Number: US-ELI_LILLY_AND_COMPANY-US200902007102

PATIENT
  Sex: Female

DRUGS (1)
  1. FORTEO [Suspect]
     Dosage: UNK, UNK
     Dates: start: 20080101, end: 20090206

REACTIONS (6)
  - ANGER [None]
  - CALCINOSIS [None]
  - DYSPNOEA [None]
  - NEPHROLITHIASIS [None]
  - PAIN [None]
  - STENT PLACEMENT [None]
